FAERS Safety Report 18367138 (Version 1)
Quarter: 2020Q4

REPORT INFORMATION
  Report Type: Spontaneous
  Country: FR (occurrence: FR)
  Receive Date: 20201009
  Receipt Date: 20201009
  Transmission Date: 20210114
  Serious: Yes (Other)
  Sender: FDA-Public Use
  Company Number: FR-JNJFOC-20201008132

PATIENT
  Age: 85 Year
  Sex: Male

DRUGS (1)
  1. XARELTO [Suspect]
     Active Substance: RIVAROXABAN
     Indication: ARRHYTHMIA
     Dosage: 15 MG
     Route: 048

REACTIONS (5)
  - Renal impairment [Unknown]
  - Gastrooesophageal reflux disease [Unknown]
  - Renal failure [Unknown]
  - Coagulopathy [Unknown]
  - Gingival bleeding [Unknown]
